FAERS Safety Report 6880155-X (Version None)
Quarter: 2010Q3

REPORT INFORMATION
  Report Type: 
  Country: None (occurrence: None)
  Receive Date: 20100728
  Receipt Date: 20100224
  Transmission Date: 20110219
  Serious: Yes (Hospitalization)
  Sender: FDA-Public Use
  Company Number: US-BRISTOL-MYERS SQUIBB COMPANY-14991533

PATIENT
  Age: 46 Year
  Sex: Male

DRUGS (1)
  1. DASATINIB [Suspect]

REACTIONS (2)
  - FAILURE TO THRIVE [None]
  - NAUSEA [None]
